FAERS Safety Report 7454428-6 (Version None)
Quarter: 2011Q2

REPORT INFORMATION
  Report Type: 
  Country: None (occurrence: None)
  Receive Date: 20110503
  Receipt Date: 20110419
  Transmission Date: 20111010
  Serious: Yes (Hospitalization)
  Sender: FDA-Public Use
  Company Number: AT-RANBAXY-2011R1-43840

PATIENT
  Age: 52 Year
  Sex: Male

DRUGS (1)
  1. OXCARBAZEPINE [Suspect]
     Indication: ALCOHOL WITHDRAWAL SYNDROME
     Dosage: UNK,UNK
     Route: 065

REACTIONS (1)
  - DRUG ERUPTION [None]
